FAERS Safety Report 25797934 (Version 1)
Quarter: 2025Q3

REPORT INFORMATION
  Report Type: Spontaneous
  Country: US (occurrence: None)
  Receive Date: 20250912
  Receipt Date: 20250912
  Transmission Date: 20251020
  Serious: No
  Sender: FDA-CTU
  Company Number: None

PATIENT
  Age: 12 Year
  Sex: Female
  Weight: 44.1 kg

DRUGS (2)
  1. SERTRALINE HYDROCHLORIDE [Suspect]
     Active Substance: SERTRALINE HYDROCHLORIDE
     Indication: Generalised anxiety disorder
     Route: 048
     Dates: start: 20250906, end: 20250909
  2. Olly teen girl multi vitamin [Concomitant]

REACTIONS (2)
  - Dystonia [None]
  - Torticollis [None]

NARRATIVE: CASE EVENT DATE: 20250909
